FAERS Safety Report 14389520 (Version 1)
Quarter: 2018Q1

REPORT INFORMATION
  Report Type: Spontaneous
  Country: US (occurrence: US)
  Receive Date: 20180115
  Receipt Date: 20180115
  Transmission Date: 20180509
  Serious: Yes (Other)
  Sender: FDA-Public Use
  Company Number: US-SA-2017SA242547

PATIENT
  Age: 59 Year
  Sex: Female
  Weight: 58.96 kg

DRUGS (4)
  1. TAXOTERE [Suspect]
     Active Substance: DOCETAXEL
     Indication: HEPATIC CANCER
     Route: 051
     Dates: start: 20020118, end: 20020118
  2. TAXOTERE [Suspect]
     Active Substance: DOCETAXEL
     Indication: BREAST CANCER FEMALE
     Route: 051
     Dates: start: 20020118, end: 20020118
  3. TAXOTERE [Suspect]
     Active Substance: DOCETAXEL
     Indication: BREAST CANCER FEMALE
     Route: 051
     Dates: start: 20020517, end: 20020517
  4. TAXOTERE [Suspect]
     Active Substance: DOCETAXEL
     Indication: HEPATIC CANCER
     Route: 051
     Dates: start: 20020517, end: 20020517

REACTIONS (1)
  - Alopecia [Not Recovered/Not Resolved]

NARRATIVE: CASE EVENT DATE: 200203
